FAERS Safety Report 21325897 (Version 1)
Quarter: 2022Q3

REPORT INFORMATION
  Report Type: Spontaneous
  Country: US (occurrence: US)
  Receive Date: 20220913
  Receipt Date: 20220913
  Transmission Date: 20221027
  Serious: No
  Sender: FDA-Public Use
  Company Number: US-TEVA-2022-US-2068802

PATIENT
  Age: 72 Year
  Sex: Female

DRUGS (4)
  1. FAMOTIDINE [Suspect]
     Active Substance: FAMOTIDINE
     Indication: Dyspepsia
     Dosage: 20 MILLIGRAM DAILY;
     Route: 065
  2. FAMOTIDINE [Suspect]
     Active Substance: FAMOTIDINE
     Dosage: 40 MILLIGRAM DAILY;
     Route: 065
  3. TAGAMET [Concomitant]
     Active Substance: CIMETIDINE
     Indication: Product used for unknown indication
     Route: 065
  4. RANITIDINE [Concomitant]
     Active Substance: RANITIDINE
     Indication: Product used for unknown indication
     Route: 065

REACTIONS (6)
  - Irritable bowel syndrome [Unknown]
  - Abdominal pain upper [Unknown]
  - Burning sensation [Unknown]
  - Underdose [Unknown]
  - Rash [Unknown]
  - Exposure to allergen [Unknown]
